FAERS Safety Report 12169690 (Version 1)
Quarter: 2016Q1

REPORT INFORMATION
  Report Type: Report from Study
  Country: US (occurrence: US)
  Receive Date: 20160310
  Receipt Date: 20160310
  Transmission Date: 20160526
  Serious: Yes (Other)
  Sender: FDA-Public Use
  Company Number: GXBR2016US000885

PATIENT
  Age: 34 Year
  Sex: Female
  Weight: 65.31 kg

DRUGS (3)
  1. GLATOPA [Suspect]
     Active Substance: GLATIRAMER ACETATE
     Indication: MULTIPLE SCLEROSIS
     Dosage: 20 MG, QD
     Route: 058
     Dates: start: 20151015, end: 20160229
  2. ORAL CONTRACEPTIVE NOS [Concomitant]
     Active Substance: UNSPECIFIED INGREDIENT
     Indication: CONTRACEPTION
     Dosage: 1 DF, QD
     Route: 048
  3. VALTREX [Concomitant]
     Active Substance: VALACYCLOVIR HYDROCHLORIDE
     Indication: ORAL HERPES
     Dosage: UNK DF, PRN FOR OUTBREAK
     Route: 048

REACTIONS (8)
  - Dyspnoea [Recovered/Resolved]
  - Generalised erythema [Recovered/Resolved]
  - Dizziness [Recovered/Resolved]
  - Pharyngeal oedema [Recovered/Resolved]
  - Injection site haemorrhage [Recovered/Resolved]
  - Hypersensitivity [Recovered/Resolved]
  - Asthenia [Recovered/Resolved]
  - Dysarthria [Recovered/Resolved]

NARRATIVE: CASE EVENT DATE: 20160229
